FAERS Safety Report 11997654 (Version 1)
Quarter: 2016Q1

REPORT INFORMATION
  Report Type: Spontaneous
  Country: US (occurrence: US)
  Receive Date: 20160203
  Receipt Date: 20160203
  Transmission Date: 20160526
  Serious: No
  Sender: FDA-Public Use
  Company Number: US-ANACOR-2015ANA00196

PATIENT
  Age: 50 Year
  Sex: Female

DRUGS (2)
  1. KERYDIN [Suspect]
     Active Substance: TAVABOROLE
     Indication: ONYCHOMYCOSIS
     Dosage: UNK, 1X/DAY
     Route: 061
     Dates: start: 20150605, end: 201506
  2. BELVIQ [Concomitant]
     Active Substance: LORCASERIN HYDROCHLORIDE
     Dosage: 10 MG, UNK

REACTIONS (2)
  - Nail discolouration [Recovering/Resolving]
  - Onycholysis [Recovering/Resolving]

NARRATIVE: CASE EVENT DATE: 201506
